FAERS Safety Report 12375231 (Version 1)
Quarter: 2016Q2

REPORT INFORMATION
  Report Type: Spontaneous
  Country: GB (occurrence: None)
  Receive Date: 20160516
  Receipt Date: 20160516
  Transmission Date: 20160815
  Serious: Yes (Disabling)
  Sender: FDA-Public Use
  Company Number: None

PATIENT
  Age: 29 Year
  Sex: Female
  Weight: 54 kg

DRUGS (5)
  1. VITAMIN D3 [Concomitant]
     Active Substance: CHOLECALCIFEROL
  2. AZIOTHIAPRINE [Concomitant]
  3. CIPROFLOXACIN BAYER [Suspect]
     Active Substance: CIPROFLOXACIN
     Indication: ANORECTAL DISCOMFORT
     Dosage: TWICE A DAY
     Route: 048
     Dates: start: 20120418, end: 20140228
  4. HUMIRA [Concomitant]
     Active Substance: ADALIMUMAB
  5. CALCOCHEW [Concomitant]

REACTIONS (16)
  - Anxiety [None]
  - Impaired work ability [None]
  - Tenosynovitis [None]
  - Exercise tolerance decreased [None]
  - Bursitis [None]
  - Fatigue [None]
  - Rash [None]
  - Neuropathy peripheral [None]
  - Disturbance in attention [None]
  - Tendon disorder [None]
  - Depersonalisation/derealisation disorder [None]
  - Musculoskeletal disorder [None]
  - Electrocardiogram QT prolonged [None]
  - Myalgia [None]
  - Muscle tightness [None]
  - Stress [None]

NARRATIVE: CASE EVENT DATE: 20120418
